FAERS Safety Report 6174700-X (Version None)
Quarter: 2009Q2

REPORT INFORMATION
  Report Type: 
  Country: None (occurrence: None)
  Receive Date: 20090430
  Receipt Date: 20080820
  Transmission Date: 20091009
  Serious: No
  Sender: FDA-Public Use
  Company Number: US-ASTRAZENECA-2008UW17057

PATIENT
  Age: 58 Year
  Sex: Female
  Weight: 61.2 kg

DRUGS (4)
  1. NEXIUM [Suspect]
     Indication: GASTROOESOPHAGEAL REFLUX DISEASE
     Dosage: 40 MG ONCE OR TWICE A DAY AS NEEDED
     Route: 048
     Dates: start: 20080819
  2. XANAX [Concomitant]
  3. BUSPAR [Concomitant]
  4. PREMPRO [Concomitant]

REACTIONS (2)
  - PALPITATIONS [None]
  - TREMOR [None]
